FAERS Safety Report 25406161 (Version 2)
Quarter: 2025Q2

REPORT INFORMATION
  Report Type: Report from Study
  Country: CA (occurrence: CA)
  Receive Date: 20250606
  Receipt Date: 20250616
  Transmission Date: 20250717
  Serious: Yes (Other)
  Sender: CSL BEHRING
  Company Number: CA-BEH-2025199912

PATIENT
  Age: 57 Year
  Sex: Male
  Weight: 133 kg

DRUGS (19)
  1. HIZENTRA [Suspect]
     Active Substance: HUMAN IMMUNOGLOBULIN G
     Indication: Myasthenia gravis
     Dosage: QW
     Route: 058
     Dates: start: 20230912
  2. HIZENTRA [Suspect]
     Active Substance: HUMAN IMMUNOGLOBULIN G
     Dosage: 34 G, QW(IN 2 DIVIDED DOSES IN A WEEK)
     Route: 058
     Dates: start: 20230912
  3. HIZENTRA [Suspect]
     Active Substance: HUMAN IMMUNOGLOBULIN G
     Dosage: 34 G, QW
     Route: 058
     Dates: start: 20230912, end: 20250603
  4. IMURAN [Concomitant]
     Active Substance: AZATHIOPRINE
  5. CELLCEPT [Concomitant]
     Active Substance: MYCOPHENOLATE MOFETIL
  6. PREDNISONE [Concomitant]
     Active Substance: PREDNISONE
  7. ZOLOFT [Concomitant]
     Active Substance: SERTRALINE HYDROCHLORIDE
  8. GABAPENTIN [Concomitant]
     Active Substance: GABAPENTIN
  9. ZOPICLONE [Concomitant]
     Active Substance: ZOPICLONE
  10. B12 [Concomitant]
     Dosage: 1 MG, QMT
  11. FUROSEMIDE [Concomitant]
     Active Substance: FUROSEMIDE
  12. NAPROXEN [Concomitant]
     Active Substance: NAPROXEN
  13. BILASTINE [Concomitant]
     Active Substance: BILASTINE
  14. INDAPAMIDE [Concomitant]
     Active Substance: INDAPAMIDE
  15. PRAMIPEXOLE [Concomitant]
     Active Substance: PRAMIPEXOLE
     Dosage: 0.25 MG, QD  5 TABS
  16. CRESTOR [Concomitant]
     Active Substance: ROSUVASTATIN CALCIUM
  17. CANDESARTAN [Concomitant]
     Active Substance: CANDESARTAN
  18. FESOTERODINE FUMARATE [Concomitant]
     Active Substance: FESOTERODINE FUMARATE
     Dosage: 4MG 1 TAB DAILY
  19. POTASSIUM [Concomitant]
     Active Substance: POTASSIUM

REACTIONS (7)
  - Lower respiratory tract infection [Unknown]
  - Hypoaesthesia [Unknown]
  - Abdominal mass [Unknown]
  - Stomach mass [Unknown]
  - Malaise [Unknown]
  - Incorrect dose administered [Unknown]
  - Off label use [Unknown]

NARRATIVE: CASE EVENT DATE: 20250528
